FAERS Safety Report 7170093-X (Version None)
Quarter: 2010Q4

REPORT INFORMATION
  Report Type: 
  Country: None (occurrence: None)
  Receive Date: 20101214
  Receipt Date: 20101214
  Transmission Date: 20110411
  Serious: Yes (Other)
  Sender: FDA-Public Use
  Company Number: None

PATIENT
  Sex: Female
  Weight: 97.5234 kg

DRUGS (2)
  1. DARVOCET-N 100 [Suspect]
     Indication: ARTHRALGIA
     Dosage: 1 TAB EVERY 6 HRS BY MOUTH
     Route: 048
     Dates: start: 20100501
  2. DARVOCET-N 100 [Suspect]
     Indication: ARTHRALGIA
     Dosage: 1 TAB EVERY 6 HRS BY MOUTH
     Route: 048
     Dates: start: 20101101

REACTIONS (3)
  - PALPITATIONS [None]
  - TACHYCARDIA [None]
  - VENTRICULAR EXTRASYSTOLES [None]
